FAERS Safety Report 7803828-0 (Version None)
Quarter: 2011Q4

REPORT INFORMATION
  Report Type: 
  Country: None (occurrence: None)
  Receive Date: 20111010
  Receipt Date: 20111005
  Transmission Date: 20120403
  Serious: Yes (Death, Other)
  Sender: FDA-Public Use
  Company Number: PHEH2005US10711

PATIENT
  Sex: Female
  Weight: 66.213 kg

DRUGS (31)
  1. KLONOPIN [Concomitant]
     Indication: SLEEP DISORDER
     Dosage: 0.5 MG, QHS
  2. ATIVAN [Concomitant]
     Dosage: 1 MG, UNK
  3. SOLU-MEDROL [Concomitant]
     Dosage: 62.5 MG, UNK
  4. VANCOMYCIN [Concomitant]
     Dosage: 150 MG, Q12H
  5. ACYCLOVIR [Concomitant]
     Dosage: 440 MG, QD
  6. AREDIA [Suspect]
     Dosage: 60 MG, UNK
     Dates: start: 20030820, end: 20050518
  7. CARBOPLATIN [Concomitant]
     Indication: CHEMOTHERAPY
  8. BENADRYL [Concomitant]
     Dosage: 25 MG, UNK
  9. LASIX [Concomitant]
  10. RESTORIL [Concomitant]
     Dosage: 22.5 MG, QHS
     Route: 048
  11. XANAX [Concomitant]
     Dosage: 0.5 MG, TID
     Route: 048
  12. AREDIA [Suspect]
     Dosage: 30 MG, UNK
     Dates: start: 20021016, end: 20030730
  13. VITAMIN B-12 [Concomitant]
     Indication: ANAEMIA
     Dosage: 2000 UG, UNK
  14. EFFEXOR [Concomitant]
     Dosage: 75 MG, QD
     Route: 048
  15. AREDIA [Suspect]
     Dosage: 60 MG, ONCE/SINGLE
     Dates: start: 20021002
  16. ZOMETA [Suspect]
     Indication: BREAST CANCER
     Dosage: 4 MG, UNK
     Dates: start: 20020327, end: 20020925
  17. HERCEPTIN [Concomitant]
     Indication: BREAST CANCER RECURRENT
  18. ARIMIDEX [Concomitant]
     Indication: BREAST CANCER
  19. PAXIL [Concomitant]
     Indication: DEPRESSION
     Dosage: 20 MG, UNK
  20. AREDIA [Suspect]
     Indication: BREAST CANCER
     Dosage: 90 MG, UNK
     Dates: start: 20000101, end: 20020305
  21. WELLBUTRIN [Concomitant]
     Indication: DEPRESSION
     Dosage: 150 MG, UNK
  22. ANZEMET [Concomitant]
     Indication: PROPHYLAXIS OF NAUSEA AND VOMITING
  23. AUGMENTIN - SLOW RELEASE [Concomitant]
     Dosage: 1 DF, BID
     Route: 048
  24. AMBIEN [Concomitant]
     Indication: SLEEP DISORDER
     Dosage: 10 MG, PRN
     Route: 048
  25. TYLENOL-500 [Concomitant]
     Indication: ARTHRALGIA
  26. PEPCID [Concomitant]
     Dosage: 20 MG, BID
  27. EPOETIN NOS [Concomitant]
     Indication: ANAEMIA
  28. TAMOXIFEN CITRATE [Concomitant]
     Indication: BREAST CANCER
     Dates: start: 20000101, end: 20050201
  29. ROCEPHIN [Concomitant]
  30. DIFLUCAN [Concomitant]
  31. DIGOXIN [Concomitant]

REACTIONS (48)
  - POOR PERIPHERAL CIRCULATION [None]
  - CEREBROVASCULAR ACCIDENT [None]
  - SENSITIVITY OF TEETH [None]
  - ORAL PAIN [None]
  - TOOTH ABSCESS [None]
  - PRIMARY SEQUESTRUM [None]
  - INJURY [None]
  - CEREBRAL ISCHAEMIA [None]
  - BONE SCAN ABNORMAL [None]
  - OSTEONECROSIS OF JAW [None]
  - RADIATION INJURY [None]
  - STAPHYLOCOCCAL ABSCESS [None]
  - OSTEOMYELITIS [None]
  - INFLAMMATION [None]
  - PURULENT DISCHARGE [None]
  - ACUTE MYELOID LEUKAEMIA [None]
  - SINUS DISORDER [None]
  - LARYNGITIS [None]
  - VOCAL CORD THICKENING [None]
  - PLEURAL EFFUSION [None]
  - HEPATIC STEATOSIS [None]
  - DEATH [None]
  - IMPAIRED HEALING [None]
  - BONE DENSITY DECREASED [None]
  - BONE DISORDER [None]
  - LYMPHADENOPATHY [None]
  - VERTIGO [None]
  - NEUTROPENIA [None]
  - JAW FRACTURE [None]
  - INFECTION [None]
  - TUMOUR INVASION [None]
  - INSOMNIA [None]
  - COUGH [None]
  - TENDERNESS [None]
  - SWELLING [None]
  - HERPES ZOSTER [None]
  - DENTAL CARIES [None]
  - ASTHMA [None]
  - EXOSTOSIS [None]
  - PYREXIA [None]
  - FIBROSIS [None]
  - PLATELET COUNT DECREASED [None]
  - BONE MARROW FAILURE [None]
  - FURUNCLE [None]
  - PULPITIS DENTAL [None]
  - ATELECTASIS [None]
  - ASCITES [None]
  - ARRHYTHMIA [None]
